FAERS Safety Report 9020361 (Version 1)
Quarter: 2013Q1

REPORT INFORMATION
  Report Type: Spontaneous
  Country: US (occurrence: US)
  Receive Date: 20130119
  Receipt Date: 20130119
  Transmission Date: 20140127
  Serious: No
  Sender: FDA-Public Use
  Company Number: US-ALLERGAN-1206937US

PATIENT
  Age: 58 Year
  Sex: Female
  Weight: 54.42 kg

DRUGS (3)
  1. BOTOX COSMETIC [Suspect]
     Indication: SKIN WRINKLING
     Dosage: 20 UNITS, SINGLE
     Route: 030
     Dates: start: 20120326, end: 20120326
  2. BOTOX COSMETIC [Suspect]
     Indication: SKIN WRINKLING
  3. JUVEDERM ULTRA XC [Suspect]
     Indication: SKIN WRINKLING
     Dosage: 2 UNK, UNK
     Dates: start: 20120326, end: 20120326

REACTIONS (2)
  - Lymphadenopathy [Not Recovered/Not Resolved]
  - Dry mouth [Unknown]
